FAERS Safety Report 24652449 (Version 1)
Quarter: 2024Q4

REPORT INFORMATION
  Report Type: Spontaneous
  Country: US (occurrence: US)
  Receive Date: 20241122
  Receipt Date: 20241122
  Transmission Date: 20250115
  Serious: No
  Sender: ALVOGEN
  Company Number: US-ALVOGEN-2024094760

PATIENT
  Sex: Female

DRUGS (2)
  1. TERIPARATIDE [Suspect]
     Active Substance: TERIPARATIDE
     Indication: Bone disorder
     Dosage: STRENGTH: 250MCG/ML, DAILY
     Route: 058
     Dates: start: 202301
  2. TERIPARATIDE [Suspect]
     Active Substance: TERIPARATIDE
     Indication: Bone disorder
     Dosage: STRENGTH: 250MCG/ML, DAILY?EXP. DATE: NOV-2024?OPENED A FRESH BOX ON 24-MAY-2024 (DID NOT USE)
     Route: 058

REACTIONS (3)
  - Liquid product physical issue [Unknown]
  - Product dose omission issue [Unknown]
  - Off label use [Unknown]

NARRATIVE: CASE EVENT DATE: 20240101
